FAERS Safety Report 9798277 (Version 1)
Quarter: 2014Q1

REPORT INFORMATION
  Report Type: Spontaneous
  Country: US (occurrence: US)
  Receive Date: 20140106
  Receipt Date: 20140106
  Transmission Date: 20141002
  Serious: No
  Sender: FDA-Public Use
  Company Number: US-BAYER-2013-159202

PATIENT
  Sex: Female

DRUGS (1)
  1. CLIMARA [Suspect]
     Dosage: 0.1 MG/24HR, ONCE A WEEK
     Route: 062
     Dates: start: 201309, end: 20131220

REACTIONS (1)
  - Hot flush [Recovered/Resolved]
